FAERS Safety Report 13349466 (Version 1)
Quarter: 2017Q1

REPORT INFORMATION
  Report Type: Spontaneous
  Country: US (occurrence: US)
  Receive Date: 20170317
  Receipt Date: 20170317
  Transmission Date: 20170428
  Serious: Yes (Other)
  Sender: FDA-Public Use
  Company Number: None

PATIENT
  Age: 42 Year
  Sex: Female
  Weight: 63 kg

DRUGS (3)
  1. CEPHALEXIN. [Suspect]
     Active Substance: CEPHALEXIN
     Indication: ANIMAL BITE
     Dosage: ?          QUANTITY:20 CAPSULE(S);?
     Route: 048
     Dates: start: 20170307, end: 20170314
  2. SMZ/ TMP DS [Suspect]
     Active Substance: SULFAMETHOXAZOLE\TRIMETHOPRIM
     Indication: ANIMAL BITE
     Dosage: ?          QUANTITY:14 TABLET(S);?
     Route: 048
     Dates: start: 20170307, end: 20170314
  3. SMZ/ TMP DS [Suspect]
     Active Substance: SULFAMETHOXAZOLE\TRIMETHOPRIM
     Indication: LACERATION
     Dosage: ?          QUANTITY:14 TABLET(S);?
     Route: 048
     Dates: start: 20170307, end: 20170314

REACTIONS (13)
  - Irritability [None]
  - Paraesthesia [None]
  - Urine odour abnormal [None]
  - Laceration [None]
  - Confusional state [None]
  - Disturbance in attention [None]
  - Fatigue [None]
  - Mood swings [None]
  - Insomnia [None]
  - Pain in extremity [None]
  - Animal bite [None]
  - Decreased appetite [None]
  - Hunger [None]

NARRATIVE: CASE EVENT DATE: 20170306
